FAERS Safety Report 24938152 (Version 1)
Quarter: 2025Q1

REPORT INFORMATION
  Report Type: Report from Study
  Country: NL (occurrence: NL)
  Receive Date: 20250206
  Receipt Date: 20250206
  Transmission Date: 20250409
  Serious: Yes (Hospitalization)
  Sender: BIOVITRUM
  Company Number: NL-AstraZeneca-CH-00797634A

PATIENT
  Age: 32 Week
  Sex: Male
  Weight: 3.43 kg

DRUGS (2)
  1. SYNAGIS [Suspect]
     Active Substance: PALIVIZUMAB
     Indication: Product used for unknown indication
     Route: 030
     Dates: start: 20241219
  2. FERROUS FUMARATE [Concomitant]
     Active Substance: FERROUS FUMARATE
     Indication: Product used for unknown indication
     Route: 065

REACTIONS (1)
  - Crying [Not Recovered/Not Resolved]
